FAERS Safety Report 18721388 (Version 4)
Quarter: 2021Q1

REPORT INFORMATION
  Report Type: Spontaneous
  Country: IT (occurrence: IT)
  Receive Date: 20210109
  Receipt Date: 20210205
  Transmission Date: 20210419
  Serious: Yes (Hospitalization, Other)
  Sender: FDA-Public Use
  Company Number: GXKR2010IT12772

PATIENT
  Age: 66 Year
  Sex: Male

DRUGS (4)
  1. LOSARTAN POTASSIUM. [Interacting]
     Active Substance: LOSARTAN POTASSIUM
     Indication: HYPERTENSION
     Dosage: UNK
     Route: 048
  2. SILDENAFIL CITRATE. [Interacting]
     Active Substance: SILDENAFIL CITRATE
     Indication: ERECTILE DYSFUNCTION
     Dosage: UNK, PATIENT WAS ON SILDENAFIL INFREQUENTLY; NEVER USED SILDENAFIL SINCE STARTED WITH ROSUVASTATIN
     Route: 048
  3. ROSUVASTATIN. [Suspect]
     Active Substance: ROSUVASTATIN
     Indication: PRODUCT USED FOR UNKNOWN INDICATION
     Dosage: 10 MG, QD (TABLET)
     Route: 048
  4. METFORMIN [Concomitant]
     Active Substance: METFORMIN HYDROCHLORIDE
     Indication: DIABETES MELLITUS
     Dosage: UNK
     Route: 065

REACTIONS (9)
  - Spontaneous penile erection [Unknown]
  - Myalgia [Recovering/Resolving]
  - Drug interaction [Recovered/Resolved]
  - Priapism [Recovered/Resolved]
  - Rhabdomyolysis [Recovered/Resolved]
  - Muscular weakness [Recovering/Resolving]
  - Erection increased [Recovering/Resolving]
  - Chromaturia [Recovering/Resolving]
  - Myopathy [Recovered/Resolved]
